FAERS Safety Report 4871786-7 (Version None)
Quarter: 2006Q1

REPORT INFORMATION
  Report Type: 
  Country: None (occurrence: None)
  Receive Date: 20060104
  Receipt Date: 20051202
  Transmission Date: 20060701
  Serious: Yes (Hospitalization)
  Sender: FDA-Public Use
  Company Number: US-GLAXOSMITHKLINE-A0584480A

PATIENT
  Age: 17 Year
  Sex: Female

DRUGS (9)
  1. LAMICTAL [Suspect]
     Indication: BIPOLAR DISORDER
     Dosage: 150MG TWICE PER DAY
     Route: 048
     Dates: start: 20051018
  2. SPIRONOLACTONE [Concomitant]
  3. PROVIGIL [Concomitant]
  4. FLUOXETINE [Concomitant]
  5. SUDAFED 12 HOUR [Concomitant]
  6. TYLENOL [Concomitant]
  7. ADVIL [Concomitant]
  8. RELPAX [Concomitant]
  9. ZOMIG [Concomitant]

REACTIONS (5)
  - RASH GENERALISED [None]
  - SINUSITIS [None]
  - STEVENS-JOHNSON SYNDROME [None]
  - SWELLING FACE [None]
  - URINARY TRACT INFECTION [None]
